FAERS Safety Report 15111699 (Version 1)
Quarter: 2018Q3

REPORT INFORMATION
  Report Type: Spontaneous
  Country: PK (occurrence: PK)
  Receive Date: 20180705
  Receipt Date: 20180705
  Transmission Date: 20181010
  Serious: Yes (Hospitalization)
  Sender: FDA-Public Use
  Company Number: PK-ELI_LILLY_AND_COMPANY-PK201806013574

PATIENT
  Sex: Male

DRUGS (1)
  1. HUMALOG MIX50/50 [Suspect]
     Active Substance: INSULIN LISPRO
     Indication: DIABETES MELLITUS
     Dosage: 30 U, BID
     Route: 065
     Dates: start: 2009

REACTIONS (1)
  - Hyperglycaemia [Unknown]

NARRATIVE: CASE EVENT DATE: 20180619
